FAERS Safety Report 8435378 (Version 2)
Quarter: 2014Q1

REPORT INFORMATION
  Report Type: Spontaneous
  Country: US (occurrence: US)
  Receive Date: 20120301
  Receipt Date: 20140113
  Transmission Date: 20141002
  Serious: Yes (Hospitalization)
  Sender: FDA-Public Use
  Company Number: US-GLAXOSMITHKLINE-A0932428A

PATIENT
  Age: 57 Year
  Sex: Female
  Weight: 129.5 kg

DRUGS (1)
  1. AVANDIA [Suspect]
     Indication: DIABETES MELLITUS
     Route: 048

REACTIONS (7)
  - Cardiac disorder [Not Recovered/Not Resolved]
  - Cardiovascular disorder [Unknown]
  - Stent placement [Unknown]
  - Chest pain [Unknown]
  - Balance disorder [Unknown]
  - Dyspnoea [Unknown]
  - Fatigue [Unknown]
